FAERS Safety Report 4355779-4 (Version None)
Quarter: 2004Q2

REPORT INFORMATION
  Report Type: 
  Country: None (occurrence: None)
  Receive Date: 20040510
  Receipt Date: 20040510
  Transmission Date: 20050107
  Serious: Yes (Hospitalization)
  Sender: FDA-Public Use
  Company Number: None

PATIENT
  Age: 56 Year
  Sex: Male
  Weight: 51.2565 kg

DRUGS (2)
  1. LOVENOX [Suspect]
     Indication: THROMBOTIC THROMBOCYTOPENIC PURPURA
     Dosage: 350 MG SQ
     Route: 058
  2. LOVENOX [Suspect]
     Indication: VENA CAVA THROMBOSIS
     Dosage: 350 MG SQ
     Route: 058

REACTIONS (1)
  - PLATELET COUNT DECREASED [None]
